FAERS Safety Report 5507603-1 (Version None)
Quarter: 2007Q4

REPORT INFORMATION
  Report Type: 
  Country: None (occurrence: None)
  Receive Date: 20071102
  Receipt Date: 20071019
  Transmission Date: 20080405
  Serious: Yes (Hospitalization)
  Sender: FDA-Public Use
  Company Number: TPA2007A02167

PATIENT
  Age: 62 Year
  Sex: Male
  Weight: 118.8424 kg

DRUGS (8)
  1. PIOGLITAZONE HCL [Suspect]
     Indication: CARDIOVASCULAR EVENT PROPHYLAXIS
     Dosage: 1 IN 1 D, PER ORAL
     Route: 048
     Dates: start: 20060821
  2. COREG [Concomitant]
  3. DIOVAN [Concomitant]
  4. HYDRALAZINE HCL [Concomitant]
  5. LASIX [Concomitant]
  6. ZOCOR [Concomitant]
  7. ASPIRIN [Concomitant]
  8. INDOMETHACIN [Concomitant]

REACTIONS (2)
  - ARTHRALGIA [None]
  - CARDIAC FAILURE CONGESTIVE [None]
